FAERS Safety Report 4302600-6 (Version None)
Quarter: 2004Q1

REPORT INFORMATION
  Report Type: 
  Country: None (occurrence: None)
  Receive Date: 20040220
  Receipt Date: 20040209
  Transmission Date: 20041129
  Serious: Yes (Hospitalization)
  Sender: FDA-Public Use
  Company Number: DEWYE497808JAN04

PATIENT
  Age: 64 Year
  Sex: Male

DRUGS (10)
  1. RAPAMUNE [Suspect]
     Indication: PROPHYLAXIS AGAINST TRANSPLANT REJECTION
     Dosage: 15 MG, ORAL; 5 MG, ORAL; 4 MG, ORAL
     Route: 048
     Dates: start: 20031021, end: 20031021
  2. RAPAMUNE [Suspect]
     Indication: PROPHYLAXIS AGAINST TRANSPLANT REJECTION
     Dosage: 15 MG, ORAL; 5 MG, ORAL; 4 MG, ORAL
     Route: 048
     Dates: start: 20031022, end: 20031028
  3. RAPAMUNE [Suspect]
     Indication: PROPHYLAXIS AGAINST TRANSPLANT REJECTION
     Dosage: 15 MG, ORAL; 5 MG, ORAL; 4 MG, ORAL
     Route: 048
     Dates: start: 20031029, end: 20040119
  4. PREDNISONE [Concomitant]
  5. NORVASC [Concomitant]
  6. METOPROLOL SUCCINATE [Concomitant]
  7. RAMIPRIL [Concomitant]
  8. DIBLOCIN (DOXAZOSIN MESILATE) [Concomitant]
  9. FUROSEMIDE [Concomitant]
  10. PRAVASTATIN SODIUM [Concomitant]

REACTIONS (2)
  - GASTRITIS HAEMORRHAGIC [None]
  - HAEMOGLOBIN DECREASED [None]
